FAERS Safety Report 25505240 (Version 2)
Quarter: 2025Q3

REPORT INFORMATION
  Report Type: Spontaneous
  Country: US (occurrence: US)
  Receive Date: 20250702
  Receipt Date: 20250829
  Transmission Date: 20251020
  Serious: No
  Sender: MYLAN
  Company Number: US-MYLANLABS-2025M1052631

PATIENT
  Age: 63 Year
  Sex: Female
  Weight: 70.31 kg

DRUGS (2)
  1. CYCLOSPORINE [Suspect]
     Active Substance: CYCLOSPORINE
     Indication: Dry eye
     Dosage: 1 GTT DROPS, BID (1 DROP IN EACH EYE TWICE DAILY)
     Dates: start: 20250513
  2. CYCLOSPORINE [Suspect]
     Active Substance: CYCLOSPORINE
     Dosage: 1 GTT DROPS, BID (1 DROP IN EACH EYE TWICE DAILY)
     Dates: start: 202506, end: 20250617

REACTIONS (6)
  - Dry eye [Recovering/Resolving]
  - Foreign body sensation in eyes [Recovering/Resolving]
  - Eye pruritus [Recovering/Resolving]
  - Drug ineffective [Unknown]
  - Poor quality product administered [Unknown]
  - Product colour issue [Unknown]

NARRATIVE: CASE EVENT DATE: 20250513
